FAERS Safety Report 20405104 (Version 2)
Quarter: 2022Q1

REPORT INFORMATION
  Report Type: Spontaneous
  Country: RU (occurrence: RU)
  Receive Date: 20220131
  Receipt Date: 20220207
  Transmission Date: 20220423
  Serious: Yes (Death, Hospitalization)
  Sender: FDA-Public Use
  Company Number: RU-BAYER-2022A014583

PATIENT
  Age: 63 Year
  Sex: Female

DRUGS (9)
  1. CIPROFLOXACIN [Suspect]
     Active Substance: CIPROFLOXACIN
     Indication: Colitis ulcerative
     Dosage: 1000 MG, QD
     Route: 048
     Dates: start: 20170123
  2. CIPROFLOXACIN [Suspect]
     Active Substance: CIPROFLOXACIN
     Indication: Clostridium difficile colitis
     Dosage: 400 MG
     Route: 048
  3. PREDNISOLONE [Concomitant]
     Active Substance: PREDNISOLONE
     Indication: Colitis ulcerative
     Dosage: UNK
     Route: 048
     Dates: start: 201612
  4. AZATHIOPRINE [Concomitant]
     Active Substance: AZATHIOPRINE
  5. MESALAMINE [Concomitant]
     Active Substance: MESALAMINE
     Indication: Colitis ulcerative
     Dosage: 3 G, QD
     Route: 048
     Dates: start: 201612
  6. METRONIDAZOLE [Concomitant]
     Active Substance: METRONIDAZOLE
  7. VANCOMYCIN [Concomitant]
     Active Substance: VANCOMYCIN
     Indication: Clostridium difficile colitis
     Dosage: UNK
     Route: 048
     Dates: start: 20170123
  8. VENOFER [Concomitant]
     Active Substance: IRON SUCROSE
     Indication: Anaemia
     Dosage: UNK
     Route: 051
     Dates: start: 20170123
  9. ALBUMIN HUMAN [Concomitant]
     Active Substance: ALBUMIN HUMAN
     Indication: Hypoproteinaemia
     Dosage: UNK
     Route: 042
     Dates: start: 20170123

REACTIONS (5)
  - Pancytopenia [Fatal]
  - Skin haemorrhage [None]
  - Haemothorax [None]
  - Haemoperitoneum [None]
  - Duodenal ulcer haemorrhage [None]
